FAERS Safety Report 6786305-8 (Version None)
Quarter: 2010Q2

REPORT INFORMATION
  Report Type: 
  Country: None (occurrence: None)
  Receive Date: 20100621
  Receipt Date: 20100621
  Transmission Date: 20101027
  Serious: Yes (Life-Threatening)
  Sender: FDA-Public Use
  Company Number: None

PATIENT
  Age: 67 Year
  Sex: Female
  Weight: 63.5036 kg

DRUGS (2)
  1. PRAVASTATIN SODIUM [Suspect]
     Indication: BLOOD CHOLESTEROL INCREASED
     Dosage: 80 MG 1 X DAILY OTIC
     Route: 001
     Dates: start: 20100527, end: 20100612
  2. PREVASTATIN SODIUM [Concomitant]

REACTIONS (8)
  - CHILLS [None]
  - HEADACHE [None]
  - INFECTION [None]
  - MYALGIA [None]
  - NAUSEA [None]
  - PYREXIA [None]
  - RASH [None]
  - SKIN LESION [None]
